FAERS Safety Report 7869282-8 (Version None)
Quarter: 2011Q4

REPORT INFORMATION
  Report Type: 
  Country: None (occurrence: None)
  Receive Date: 20111028
  Receipt Date: 20101230
  Transmission Date: 20120403
  Serious: No
  Sender: FDA-Public Use
  Company Number: US-AMGEN-USASP2010012436

PATIENT
  Age: 31 Year
  Sex: Male

DRUGS (8)
  1. DOXYCYCLINE [Concomitant]
  2. PREDNISONE [Concomitant]
  3. SEROQUEL [Concomitant]
  4. VICODIN [Concomitant]
  5. REMERON [Concomitant]
  6. TEGRETOL [Concomitant]
  7. ENBREL [Suspect]
     Indication: ANKYLOSING SPONDYLITIS
     Dates: start: 20090401
  8. COGENTIN [Concomitant]

REACTIONS (3)
  - ASTHENIA [None]
  - TREMOR [None]
  - EXPOSURE TO COMMUNICABLE DISEASE [None]
